FAERS Safety Report 6391378-0 (Version None)
Quarter: 2009Q4

REPORT INFORMATION
  Report Type: 
  Country: None (occurrence: None)
  Receive Date: 20091006
  Receipt Date: 20091006
  Transmission Date: 20100525
  Serious: Yes (Life-Threatening, Disabling, Other)
  Sender: FDA-Public Use
  Company Number: None

PATIENT
  Sex: Male
  Weight: 80.7403 kg

DRUGS (2)
  1. CONCERTA [Suspect]
     Indication: ATTENTION DEFICIT/HYPERACTIVITY DISORDER
     Dosage: 36MG ONCE DAILY PO
     Route: 048
     Dates: start: 20090914, end: 20091004
  2. CONCERTA [Suspect]
     Dosage: 27MG ONCE DAILOY PO
     Route: 048
     Dates: start: 20090914, end: 20091004

REACTIONS (3)
  - PARTNER STRESS [None]
  - SUICIDAL BEHAVIOUR [None]
  - SUICIDE ATTEMPT [None]
